FAERS Safety Report 15609127 (Version 3)
Quarter: 2018Q4

REPORT INFORMATION
  Report Type: Spontaneous
  Country: US (occurrence: US)
  Receive Date: 20181112
  Receipt Date: 20181213
  Transmission Date: 20190205
  Serious: Yes (Life-Threatening)
  Sender: FDA-Public Use
  Company Number: US-PFIZER INC-2018296437

PATIENT
  Age: 76 Year
  Sex: Female

DRUGS (4)
  1. LUMIGAN [Suspect]
     Active Substance: BIMATOPROST
     Indication: GLAUCOMA
     Dosage: UNK, 1X/DAY
     Dates: start: 2017
  2. XALATAN [Suspect]
     Active Substance: LATANOPROST
     Indication: INTRAOCULAR PRESSURE TEST ABNORMAL
     Dosage: UNK, 1X/DAY
     Route: 047
     Dates: start: 2018
  3. XALATAN [Suspect]
     Active Substance: LATANOPROST
     Indication: GLAUCOMA
     Dosage: UNK
     Dates: end: 2017
  4. ALPHAGAN P [Concomitant]
     Active Substance: BRIMONIDINE TARTRATE
     Dosage: UNK
     Dates: start: 200811

REACTIONS (4)
  - Drug ineffective [Unknown]
  - Muscle spasms [Unknown]
  - Dyspnoea exertional [Unknown]
  - Malaise [Unknown]

NARRATIVE: CASE EVENT DATE: 2017
